FAERS Safety Report 13965068 (Version 1)
Quarter: 2017Q3

REPORT INFORMATION
  Report Type: Spontaneous
  Country: NL (occurrence: NL)
  Receive Date: 20170913
  Receipt Date: 20170913
  Transmission Date: 20171128
  Serious: Yes (Death)
  Sender: FDA-Public Use
  Company Number: NL-TEVA-805399ACC

PATIENT
  Sex: Male
  Weight: 95 kg

DRUGS (2)
  1. FLUTAMIDE. [Suspect]
     Active Substance: FLUTAMIDE
     Indication: PROSTATE CANCER
     Dosage: 750 MILLIGRAM DAILY; 3 TIMES A DAY 250MG
     Route: 048
     Dates: start: 20170301, end: 20170813
  2. METOPROLOL TABLET   50MG [Concomitant]
     Route: 048

REACTIONS (4)
  - Clostridial sepsis [Fatal]
  - Haemolysis [Fatal]
  - Photosensitivity reaction [Recovered/Resolved]
  - Multiple organ dysfunction syndrome [Fatal]

NARRATIVE: CASE EVENT DATE: 2017
